FAERS Safety Report 5291850-0 (Version None)
Quarter: 2007Q2

REPORT INFORMATION
  Report Type: 
  Country: None (occurrence: None)
  Receive Date: 20070410
  Receipt Date: 20070327
  Transmission Date: 20071010
  Serious: Yes (Hospitalization)
  Sender: FDA-Public Use
  Company Number: ES-ELI_LILLY_AND_COMPANY-ES200703006323

PATIENT
  Age: 69 Year
  Sex: Female

DRUGS (2)
  1. FORTEO [Suspect]
     Indication: OSTEOPOROSIS
     Route: 058
     Dates: start: 20070314, end: 20070326
  2. AMERIDE [Concomitant]

REACTIONS (3)
  - GASTROENTERITIS [None]
  - PERITONEAL INFECTION [None]
  - PNEUMONIA [None]
